APPROVED DRUG PRODUCT: SODIUM NITROPRUSSIDE
Active Ingredient: SODIUM NITROPRUSSIDE
Strength: 25MG/ML
Dosage Form/Route: INJECTABLE;INJECTION
Application: A210467 | Product #001
Applicant: SUN PHARMACEUTICAL INDUSTRIES LTD
Approved: Nov 26, 2018 | RLD: No | RS: No | Type: DISCN